FAERS Safety Report 16856398 (Version 2)
Quarter: 2020Q1

REPORT INFORMATION
  Report Type: Spontaneous
  Country: CA (occurrence: CA)
  Receive Date: 20190926
  Receipt Date: 20200217
  Transmission Date: 20200409
  Serious: Yes (Other)
  Sender: FDA-Public Use
  Company Number: CA-PFIZER INC-2019416506

PATIENT
  Sex: Female

DRUGS (11)
  1. RABEPRAZOLE [Concomitant]
     Active Substance: RABEPRAZOLE
     Indication: PRODUCT USED FOR UNKNOWN INDICATION
     Dosage: 20 MILLIGRAM, QD
  2. LEVOTHYROXINE. [Concomitant]
     Active Substance: LEVOTHYROXINE
     Dosage: 100 MICROGRAM, QD
  3. METFORMIN [Concomitant]
     Active Substance: METFORMIN HYDROCHLORIDE
     Dosage: 500 MILLIGRAM, BID
  4. XELJANZ [Suspect]
     Active Substance: TOFACITINIB CITRATE
     Dosage: UNK
     Route: 065
  5. AZATHIOPRINE SODIUM. [Suspect]
     Active Substance: AZATHIOPRINE SODIUM
     Dosage: UNK
     Route: 065
  6. PREDNISONE. [Concomitant]
     Active Substance: PREDNISONE
     Dosage: 10 MILLIGRAM, QD
  7. IMURAN [Suspect]
     Active Substance: AZATHIOPRINE
     Dosage: UNK
     Route: 065
  8. ENBREL [Suspect]
     Active Substance: ETANERCEPT
     Dosage: UNK
     Route: 065
  9. HUMIRA [Suspect]
     Active Substance: ADALIMUMAB
     Dosage: UNK
     Route: 058
  10. ORENCIA [Suspect]
     Active Substance: ABATACEPT
     Dosage: UNK
     Route: 065
  11. METHOTREXATE SODIUM. [Suspect]
     Active Substance: METHOTREXATE SODIUM
     Dosage: UNK
     Route: 065

REACTIONS (12)
  - Musculoskeletal stiffness [Unknown]
  - Drug intolerance [Unknown]
  - Serum sickness [Unknown]
  - Urticaria [Unknown]
  - Vomiting [Unknown]
  - Drug ineffective [Unknown]
  - Arthralgia [Unknown]
  - Liver function test increased [Unknown]
  - Joint swelling [Unknown]
  - Hypertension [Unknown]
  - Nausea [Unknown]
  - Anaphylactic reaction [Unknown]
